FAERS Safety Report 9445208 (Version 1)
Quarter: 2013Q3

REPORT INFORMATION
  Report Type: Spontaneous
  Country: BR (occurrence: BR)
  Receive Date: 20130807
  Receipt Date: 20130807
  Transmission Date: 20140515
  Serious: Yes (Other)
  Sender: FDA-Public Use
  Company Number: BR-ELI_LILLY_AND_COMPANY-BR201307009586

PATIENT
  Sex: Female
  Weight: 79 kg

DRUGS (8)
  1. HUMULIN N [Suspect]
     Indication: TYPE 2 DIABETES MELLITUS
     Dosage: 54 IU, EACH MORNING
     Route: 058
     Dates: start: 1990
  2. HUMULIN N [Suspect]
     Dosage: 26 IU, EACH EVENING
     Route: 058
     Dates: start: 1990
  3. CLORANA [Concomitant]
     Indication: BLOOD PRESSURE
     Dosage: 25 MG, EACH MORNING
     Route: 065
  4. LOSARTAN [Concomitant]
     Indication: BLOOD PRESSURE
     Dosage: 50 MG, EACH MORNING
     Route: 065
     Dates: start: 2005
  5. LOSARTAN [Concomitant]
     Dosage: 50 MG, EACH EVENING
     Route: 065
     Dates: start: 2005
  6. ATORVASTATINA [Concomitant]
     Indication: BLOOD CHOLESTEROL
     Dosage: 20 MG, EACH EVENING
     Route: 065
     Dates: start: 2005
  7. CARBAMAZEPINA [Concomitant]
     Indication: CEREBROVASCULAR ACCIDENT
     Dosage: 200 MG, EACH EVENING
     Dates: start: 2005
  8. FLUOXETINE [Concomitant]
     Indication: ANXIETY
     Dosage: 25 MG, EACH MORNING
     Route: 065

REACTIONS (6)
  - Hypertensive crisis [Not Recovered/Not Resolved]
  - Cerebrovascular accident [Not Recovered/Not Resolved]
  - Blindness unilateral [Not Recovered/Not Resolved]
  - Motor dysfunction [Not Recovered/Not Resolved]
  - Blood glucose fluctuation [Not Recovered/Not Resolved]
  - Blood cholesterol increased [Not Recovered/Not Resolved]
